FAERS Safety Report 10305866 (Version 3)
Quarter: 2014Q3

REPORT INFORMATION
  Report Type: Spontaneous
  Country: BR (occurrence: BR)
  Receive Date: 20140715
  Receipt Date: 20140729
  Transmission Date: 20150326
  Serious: Yes (Hospitalization, Other)
  Sender: FDA-Public Use
  Company Number: BR-PFIZER INC-2014194378

PATIENT
  Age: 40 Year
  Sex: Male
  Weight: 87 kg

DRUGS (6)
  1. CELEBRA [Suspect]
     Active Substance: CELECOXIB
     Indication: SPINAL DISORDER
     Dosage: 200 MG, DAILY
     Route: 048
     Dates: start: 2004
  2. CELEBRA [Suspect]
     Active Substance: CELECOXIB
     Indication: PAIN
  3. CELEBRA [Suspect]
     Active Substance: CELECOXIB
     Indication: SPINAL PAIN
     Dosage: UNK
     Route: 048
     Dates: end: 2009
  4. CELEBRA [Suspect]
     Active Substance: CELECOXIB
     Indication: SCIATICA
     Dosage: UNK
     Route: 048
     Dates: start: 2005, end: 2005
  5. CELEBRA [Suspect]
     Active Substance: CELECOXIB
     Indication: INTERVERTEBRAL DISC PROTRUSION
  6. OXETIN [Concomitant]
     Dosage: 10 MG, DAILY
     Dates: start: 2013

REACTIONS (4)
  - Spinal disorder [Unknown]
  - Spinal cord herniation [Unknown]
  - Dysgeusia [Unknown]
  - Incorrect dose administered [Unknown]

NARRATIVE: CASE EVENT DATE: 2004
